FAERS Safety Report 25682717 (Version 1)
Quarter: 2025Q3

REPORT INFORMATION
  Report Type: Spontaneous
  Country: US (occurrence: None)
  Receive Date: 20250811
  Receipt Date: 20250811
  Transmission Date: 20251021
  Serious: Yes (Other)
  Sender: FDA-CTU
  Company Number: None

PATIENT
  Age: 86 Year
  Sex: Male
  Weight: 71.67 kg

DRUGS (12)
  1. DROXIA [Suspect]
     Active Substance: HYDROXYUREA
     Indication: Red blood cell count decreased
     Dosage: FREQUENCY : TWICE A DAY;?
     Route: 048
     Dates: start: 202406, end: 202408
  2. DROXIA [Suspect]
     Active Substance: HYDROXYUREA
     Indication: White blood cell count decreased
  3. GABAPENTIN [Concomitant]
     Active Substance: GABAPENTIN
  4. TIMOLOL [Concomitant]
     Active Substance: TIMOLOL
  5. LATANOPROST [Concomitant]
     Active Substance: LATANOPROST
  6. BLINK TEARS [Concomitant]
     Active Substance: POLYETHYLENE GLYCOL 400
  7. RESTASIS [Concomitant]
     Active Substance: CYCLOSPORINE
  8. SPIRONOLACTONE [Concomitant]
     Active Substance: SPIRONOLACTONE
  9. FERROUS SULFATE [Concomitant]
     Active Substance: FERROUS SULFATE
  10. ASPIRIN [Concomitant]
     Active Substance: ASPIRIN
  11. TAMSULOSIN [Concomitant]
     Active Substance: TAMSULOSIN
  12. SIMETHICONE (DIMETHICONE) [Concomitant]
     Active Substance: DIMETHICONE

REACTIONS (9)
  - Chills [None]
  - Dizziness [None]
  - Pruritus [None]
  - Paraesthesia [None]
  - Lip pain [None]
  - Neck pain [None]
  - Pain [None]
  - Amnesia [None]
  - Laboratory test abnormal [None]

NARRATIVE: CASE EVENT DATE: 20240901
